FAERS Safety Report 23560408 (Version 2)
Quarter: 2024Q1

REPORT INFORMATION
  Report Type: Spontaneous
  Country: SG (occurrence: SG)
  Receive Date: 20240223
  Receipt Date: 20240301
  Transmission Date: 20240410
  Serious: Yes (Hospitalization)
  Sender: FDA-Public Use
  Company Number: SG-MYLANLABS-2024M1016541

PATIENT
  Age: 56 Year
  Sex: Male
  Weight: 81 kg

DRUGS (17)
  1. ATORVASTATIN [Suspect]
     Active Substance: ATORVASTATIN
     Indication: Leukocyte adhesion deficiency type I
     Dosage: 40 MILLIGRAM, QD
     Route: 048
     Dates: start: 20240116, end: 20240116
  2. ATORVASTATIN [Suspect]
     Active Substance: ATORVASTATIN
     Indication: Dyslipidaemia
  3. ASPIRIN [Suspect]
     Active Substance: ASPIRIN
     Indication: Leukocyte adhesion deficiency type I
     Dosage: 100 MILLIGRAM, QD
     Route: 048
     Dates: start: 20240116, end: 20240116
  4. ASPIRIN [Suspect]
     Active Substance: ASPIRIN
     Indication: Dyslipidaemia
  5. CLOPIDOGREL BISULFATE [Suspect]
     Active Substance: CLOPIDOGREL BISULFATE
     Indication: Leukocyte adhesion deficiency type I
     Dosage: 75 MILLIGRAM, QD
     Route: 048
     Dates: start: 20240116, end: 20240116
  6. CLOPIDOGREL BISULFATE [Suspect]
     Active Substance: CLOPIDOGREL BISULFATE
     Indication: Dyslipidaemia
  7. BISOPROLOL [Suspect]
     Active Substance: BISOPROLOL\BISOPROLOL FUMARATE
     Indication: Dyslipidaemia
     Dosage: 2.5 MILLIGRAM, QD
     Route: 048
     Dates: start: 20240116, end: 20240116
  8. BISOPROLOL [Suspect]
     Active Substance: BISOPROLOL\BISOPROLOL FUMARATE
     Indication: Leukocyte adhesion deficiency type I
  9. EZETIMIBE [Suspect]
     Active Substance: EZETIMIBE
     Indication: Leukocyte adhesion deficiency type I
     Dosage: 10 MILLIGRAM, QD
     Route: 048
     Dates: start: 20240116, end: 20240116
  10. EZETIMIBE [Suspect]
     Active Substance: EZETIMIBE
     Indication: Dyslipidaemia
  11. FAMOTIDINE [Suspect]
     Active Substance: FAMOTIDINE
     Indication: Dyslipidaemia
     Dosage: 20 MILLIGRAM, QD
     Route: 048
     Dates: start: 20240116, end: 20240116
  12. FAMOTIDINE [Suspect]
     Active Substance: FAMOTIDINE
     Indication: Leukocyte adhesion deficiency type I
  13. Caliberi [Concomitant]
     Indication: Product used for unknown indication
     Dosage: 5 MILLIGRAM, QD
     Route: 048
     Dates: start: 20230703
  14. CHOLECALCIFEROL [Concomitant]
     Active Substance: CHOLECALCIFEROL
     Indication: Product used for unknown indication
     Dosage: 2500 INTERNATIONAL UNIT, MONTHLY
     Route: 048
     Dates: start: 20230703, end: 20231103
  15. EZETIMIBE [Concomitant]
     Active Substance: EZETIMIBE
     Indication: Product used for unknown indication
     Dosage: 10 MILLIGRAM, QD
     Route: 048
     Dates: start: 20230703
  16. LIPITOR [Concomitant]
     Active Substance: ATORVASTATIN CALCIUM
     Indication: Product used for unknown indication
     Dosage: 10 MILLIGRAM, QD
     Route: 065
     Dates: start: 20110101, end: 20240114
  17. Prostakan [Concomitant]
     Indication: Product used for unknown indication
     Dosage: UNK
     Route: 048
     Dates: start: 20230703

REACTIONS (3)
  - Periorbital oedema [Recovered/Resolved]
  - Rhinitis [Recovered/Resolved]
  - Wheezing [Recovered/Resolved]

NARRATIVE: CASE EVENT DATE: 20240116
